FAERS Safety Report 25335238 (Version 12)
Quarter: 2025Q4

REPORT INFORMATION
  Report Type: Spontaneous
  Country: US (occurrence: US)
  Receive Date: 20250520
  Receipt Date: 20251010
  Transmission Date: 20260117
  Serious: Yes (Hospitalization, Other)
  Sender: GLAXOSMITHKLINE
  Company Number: US-GSK-US2025AMR061729

PATIENT
  Sex: Female

DRUGS (8)
  1. NUCALA [Suspect]
     Active Substance: MEPOLIZUMAB
     Indication: Eosinophilic granulomatosis with polyangiitis
     Dosage: 300 MG, Q4W
     Dates: start: 202505
  2. NUCALA [Suspect]
     Active Substance: MEPOLIZUMAB
     Indication: Hypotension
  3. TYVASO DPI [Suspect]
     Active Substance: TREPROSTINIL
     Indication: Product used for unknown indication
     Dosage: UNK (TITRATION KIT AND MAIN KIT)
  4. REMODULIN [Concomitant]
     Active Substance: TREPROSTINIL
     Indication: Product used for unknown indication
     Dosage: 6NKM PUMP REMUNITY STARTER KIT
  5. REMODULIN [Concomitant]
     Active Substance: TREPROSTINIL
     Dosage: UNK
  6. ADEMPAS [Concomitant]
     Active Substance: RIOCIGUAT
     Indication: Product used for unknown indication
     Dosage: UNK
  7. ORENITRAM [Concomitant]
     Active Substance: TREPROSTINIL
     Indication: Product used for unknown indication
     Dosage: 1.5 MG TID. 1 AND 0.25MG TABLET
  8. IBUPROFEN [Concomitant]
     Active Substance: IBUPROFEN
     Indication: Headache

REACTIONS (18)
  - Hospitalisation [Not Recovered/Not Resolved]
  - Chronic obstructive pulmonary disease [Not Recovered/Not Resolved]
  - Eosinophilic granulomatosis with polyangiitis [Not Recovered/Not Resolved]
  - Condition aggravated [Not Recovered/Not Resolved]
  - Tremor [Not Recovered/Not Resolved]
  - Dyspnoea [Not Recovered/Not Resolved]
  - Throat irritation [Unknown]
  - Peripheral swelling [Not Recovered/Not Resolved]
  - Vasculitis [Not Recovered/Not Resolved]
  - Seasonal allergy [Recovering/Resolving]
  - Respiratory tract irritation [Unknown]
  - Headache [Not Recovered/Not Resolved]
  - Hypotension [Not Recovered/Not Resolved]
  - Dizziness [Not Recovered/Not Resolved]
  - Fatigue [Not Recovered/Not Resolved]
  - Somnolence [Unknown]
  - Dysarthria [Not Recovered/Not Resolved]
  - Product use in unapproved indication [Unknown]
